FAERS Safety Report 9596412 (Version 1)
Quarter: 2013Q4

REPORT INFORMATION
  Report Type: Report from Study
  Country: US (occurrence: US)
  Receive Date: 20131004
  Receipt Date: 20131004
  Transmission Date: 20140711
  Serious: Yes (Other)
  Sender: FDA-Public Use
  Company Number: US-JNJFOC-20130916763

PATIENT
  Age: 63 Year
  Sex: Female
  Weight: 87.54 kg

DRUGS (8)
  1. REMICADE [Suspect]
     Indication: RHEUMATOID ARTHRITIS
     Route: 042
  2. REMICADE [Suspect]
     Indication: PSORIATIC ARTHROPATHY
     Route: 042
  3. SIMPONI [Suspect]
     Indication: RHEUMATOID ARTHRITIS
     Route: 058
  4. SIMPONI [Suspect]
     Indication: PSORIATIC ARTHROPATHY
     Route: 058
  5. CIMZIA [Suspect]
     Indication: RHEUMATOID ARTHRITIS
     Route: 065
     Dates: start: 2012, end: 2012
  6. CIMZIA [Suspect]
     Indication: PSORIATIC ARTHROPATHY
     Route: 065
     Dates: start: 2012, end: 2012
  7. METHOTREXATE [Concomitant]
     Indication: ARTHRITIS
     Dosage: 2.5MG, 8 TABLET ONCE PER WEEK
     Route: 048
  8. FOLIC ACID [Concomitant]

REACTIONS (3)
  - Paronychia [Not Recovered/Not Resolved]
  - Guttate psoriasis [Not Recovered/Not Resolved]
  - Streptococcal infection [Unknown]
